FAERS Safety Report 6429102-5 (Version None)
Quarter: 2009Q4

REPORT INFORMATION
  Report Type: 
  Country: None (occurrence: None)
  Receive Date: 20091105
  Receipt Date: 20091022
  Transmission Date: 20100525
  Serious: Yes (Other)
  Sender: FDA-Public Use
  Company Number: FR-PFIZER INC-2009288197

PATIENT
  Age: 54 Year
  Sex: Female

DRUGS (1)
  1. SERTRALINE HCL [Suspect]
     Indication: DEPRESSION
     Dosage: 1 DF, SINGLE
     Route: 045
     Dates: start: 20091008, end: 20091008

REACTIONS (9)
  - CHEST DISCOMFORT [None]
  - DYSPNOEA [None]
  - INCORRECT ROUTE OF DRUG ADMINISTRATION [None]
  - NASAL DISCOMFORT [None]
  - SWEAT GLAND DISORDER [None]
  - TACHYPNOEA [None]
  - THIRST [None]
  - THROAT IRRITATION [None]
  - TREMOR [None]
